FAERS Safety Report 11075781 (Version 1)
Quarter: 2015Q2

REPORT INFORMATION
  Report Type: Spontaneous
  Country: PR (occurrence: PR)
  Receive Date: 20150429
  Receipt Date: 20150429
  Transmission Date: 20150821
  Serious: Yes (Other)
  Sender: FDA-Public Use
  Company Number: PR-CIPLA LTD.-2015PR03348

PATIENT

DRUGS (5)
  1. SOFOSBUVIR [Suspect]
     Active Substance: SOFOSBUVIR
     Indication: HIV INFECTION
  2. SOFOSBUVIR [Suspect]
     Active Substance: SOFOSBUVIR
     Indication: CHRONIC HEPATITIS C
     Dosage: 400 MG, QD IN THE FASTED STATE ONCE DAILY (EVENING)
     Route: 048
  3. TENOFOVIR/EMTRICITABINE/EFAVIRENZ [Suspect]
     Active Substance: EFAVIRENZ\EMTRICITABINE\TENOFOVIR DISOPROXIL FUMARATE
     Indication: HIV INFECTION
  4. TENOFOVIR/EMTRICITABINE/EFAVIRENZ [Suspect]
     Active Substance: EFAVIRENZ\EMTRICITABINE\TENOFOVIR DISOPROXIL FUMARATE
     Indication: CHRONIC HEPATITIS C
     Dosage: EFAVIRENZ 600 MG/EMTRICITABINE 200 MG/TENOFOVIR DISOPROXIL FUMARATE (TDF) 300 MG IN THE FASTED STATE
     Route: 065
  5. TENOFOVIR/EMTRICITABINE/EFAVIRENZ [Suspect]
     Active Substance: EFAVIRENZ\EMTRICITABINE\TENOFOVIR DISOPROXIL FUMARATE
     Indication: HIV INFECTION

REACTIONS (1)
  - Treatment failure [Unknown]
